FAERS Safety Report 14718864 (Version 5)
Quarter: 2019Q3

REPORT INFORMATION
  Report Type: Report from Study
  Country: CA (occurrence: CA)
  Receive Date: 20180405
  Receipt Date: 20190722
  Transmission Date: 20191004
  Serious: Yes (Life-Threatening, Hospitalization, Other)
  Sender: FDA-Public Use
  Company Number: CA-BRISTOL-MYERS SQUIBB COMPANY-BMS-2018-026459

PATIENT
  Sex: Female

DRUGS (1)
  1. ABATACEPT [Suspect]
     Active Substance: ABATACEPT
     Indication: RHEUMATOID ARTHRITIS
     Dosage: 750 MG, Q4WK
     Route: 042
     Dates: start: 20140212

REACTIONS (7)
  - Tooth infection [Unknown]
  - Respiratory failure [Unknown]
  - Pulmonary oedema [Recovering/Resolving]
  - Cardiac failure congestive [Unknown]
  - Lung infection [Unknown]
  - Pain in extremity [Unknown]
  - Chronic obstructive pulmonary disease [Recovering/Resolving]
